FAERS Safety Report 9650417 (Version 1)
Quarter: 2013Q4

REPORT INFORMATION
  Report Type: Spontaneous
  Country: FR (occurrence: FR)
  Receive Date: 20131028
  Receipt Date: 20131028
  Transmission Date: 20140711
  Serious: Yes (Hospitalization)
  Sender: FDA-Public Use
  Company Number: FR-ROCHE-1294002

PATIENT
  Age: 45 Year
  Sex: Female

DRUGS (19)
  1. VALIUM [Suspect]
     Indication: PRODUCT USED FOR UNKNOWN INDICATION
     Route: 065
     Dates: start: 20130906
  2. XEPLION [Suspect]
     Indication: PRODUCT USED FOR UNKNOWN INDICATION
     Dosage: SECOND INJECTION
     Route: 065
     Dates: start: 20130921
  3. XEPLION [Suspect]
     Route: 065
     Dates: start: 20130826
  4. DEPAKINE [Suspect]
     Indication: PRODUCT USED FOR UNKNOWN INDICATION
     Dosage: 200MG/ML
     Route: 065
     Dates: start: 20130909
  5. LEVOTHYROX [Concomitant]
     Route: 065
     Dates: end: 20130902
  6. NICOBION [Concomitant]
     Route: 065
     Dates: end: 20130902
  7. VITAMIN B1 [Concomitant]
     Route: 065
     Dates: end: 20130902
  8. VITAMIN B6 [Concomitant]
     Route: 065
     Dates: end: 20130902
  9. DOLIPRANE [Concomitant]
     Dosage: 1-3 TABLET PER DAY
     Route: 065
     Dates: start: 20130314, end: 20130915
  10. AMOXICILLIN/CLAVULANIC ACID [Concomitant]
     Dosage: 1G/125 MG:, 3 SACHET
     Route: 065
     Dates: start: 20130903
  11. OFLOXACIN [Concomitant]
     Route: 065
     Dates: start: 20130903, end: 20130904
  12. SPECIAFOLDINE [Concomitant]
     Route: 065
     Dates: start: 20130903
  13. ABILIFY [Concomitant]
     Route: 065
     Dates: start: 20130906
  14. IBUPROFEN [Concomitant]
     Route: 065
     Dates: start: 20130906, end: 20130916
  15. MODECATE [Concomitant]
     Route: 065
     Dates: start: 20130322, end: 20130902
  16. DEPAMIDE [Concomitant]
     Dosage: 2 TABLET PER DAY
     Route: 065
     Dates: start: 20130607, end: 20130902
  17. LOXAPAC [Concomitant]
     Dosage: 25MG/ML, 600 DROPS PER DAY
     Route: 065
     Dates: start: 20130910, end: 20130916
  18. SERESTA [Concomitant]
     Route: 065
     Dates: start: 20130915, end: 20130916
  19. TERBINAFINE [Concomitant]
     Route: 065
     Dates: start: 20130919

REACTIONS (1)
  - Hyporeflexia [Unknown]
